FAERS Safety Report 23594497 (Version 1)
Quarter: 2024Q1

REPORT INFORMATION
  Report Type: Spontaneous
  Country: RU (occurrence: RU)
  Receive Date: 20240305
  Receipt Date: 20240305
  Transmission Date: 20240410
  Serious: Yes (Other)
  Sender: FDA-Public Use
  Company Number: RU-AMGEN-RUSSP2024040527

PATIENT
  Age: 71 Year
  Sex: Female

DRUGS (2)
  1. CINACALCET HYDROCHLORIDE [Suspect]
     Active Substance: CINACALCET HYDROCHLORIDE
     Indication: Hyperparathyroidism tertiary
     Dosage: 30 MILLIGRAM, QD (TOOK FOR A MONTH)
     Route: 065
     Dates: start: 202210, end: 2022
  2. VELPHORO [Concomitant]
     Active Substance: SUCROFERRIC OXYHYDROXIDE
     Indication: Blood phosphorus increased
     Dosage: 1500 MILLIGRAM, QD
     Route: 065
     Dates: start: 202210

REACTIONS (4)
  - Parathyroid tumour benign [Unknown]
  - Drug intolerance [Unknown]
  - Off label use [Unknown]
  - Hypocalcaemia [Unknown]

NARRATIVE: CASE EVENT DATE: 20220101
